FAERS Safety Report 7289408-7 (Version None)
Quarter: 2011Q1

REPORT INFORMATION
  Report Type: 
  Country: None (occurrence: None)
  Receive Date: 20110211
  Receipt Date: 20110202
  Transmission Date: 20110831
  Serious: Yes (Hospitalization, Other)
  Sender: FDA-Public Use
  Company Number: IE-MEDIMMUNE-MEDI-0012013

PATIENT
  Sex: Male
  Weight: 8.62 kg

DRUGS (3)
  1. SYNAGIS [Suspect]
     Route: 030
     Dates: start: 20101019, end: 20101019
  2. SYNAGIS [Suspect]
     Route: 030
     Dates: start: 20101101, end: 20101101
  3. SYNAGIS [Suspect]
     Route: 030
     Dates: start: 20101201, end: 20110125

REACTIONS (6)
  - LOWER RESPIRATORY TRACT INFECTION [None]
  - PNEUMONIA [None]
  - DECREASED APPETITE [None]
  - LETHARGY [None]
  - DYSPNOEA [None]
  - MALAISE [None]
